FAERS Safety Report 6263248-X (Version None)
Quarter: 2009Q3

REPORT INFORMATION
  Report Type: 
  Country: None (occurrence: None)
  Receive Date: 20090710
  Receipt Date: 20070501
  Transmission Date: 20100115
  Serious: Yes (Other)
  Sender: FDA-Public Use
  Company Number: US-ASTRAZENECA-2006UW22715

PATIENT
  Age: 14964 Day
  Sex: Female
  Weight: 124.7 kg

DRUGS (51)
  1. SEROQUEL [Suspect]
     Indication: SCHIZOPHRENIA
     Dosage: 100 MG/300 MG
     Route: 048
  2. SEROQUEL [Suspect]
     Indication: DEPRESSION
     Dosage: 100 MG/300 MG
     Route: 048
  3. SEROQUEL [Suspect]
     Indication: PSYCHOTIC DISORDER
     Dosage: 100 MG/300 MG
     Route: 048
  4. SEROQUEL [Suspect]
     Indication: MOOD ALTERED
     Dosage: 100 MG/300 MG
     Route: 048
  5. SEROQUEL [Suspect]
     Dosage: 25 TO 1200 MG
     Route: 048
     Dates: start: 20020624, end: 20060804
  6. SEROQUEL [Suspect]
     Dosage: 25 TO 1200 MG
     Route: 048
     Dates: start: 20020624, end: 20060804
  7. SEROQUEL [Suspect]
     Dosage: 25 TO 1200 MG
     Route: 048
     Dates: start: 20020624, end: 20060804
  8. SEROQUEL [Suspect]
     Dosage: 25 TO 1200 MG
     Route: 048
     Dates: start: 20020624, end: 20060804
  9. GEODON [Concomitant]
  10. THORAZINE [Concomitant]
  11. TRILEPTAL [Concomitant]
  12. ELAVIL [Concomitant]
  13. ZYRTEC [Concomitant]
  14. IBUPROFEN [Concomitant]
  15. ALBUTEROL [Concomitant]
  16. GLUCOPHAGE [Concomitant]
  17. NAPROXEN [Concomitant]
  18. AMBIEN [Concomitant]
  19. LEXAPRO [Concomitant]
  20. BENADRYL [Concomitant]
  21. NEURONTIN [Concomitant]
  22. ZOCOR [Concomitant]
  23. CYMBALTA [Concomitant]
  24. LISINOPRIL [Concomitant]
  25. TYLENOL [Concomitant]
  26. HALDOL [Concomitant]
  27. LANTUS [Concomitant]
  28. PROTONIX [Concomitant]
  29. NOVOLIN [Concomitant]
  30. ATIVAN [Concomitant]
  31. METOPROLOL SUCCINATE [Concomitant]
  32. MAGNESIUM HYDROXIDE TAB [Concomitant]
  33. ALPRAZOLAM [Concomitant]
  34. DOCUSATE SODIUM [Concomitant]
  35. BISACODYL [Concomitant]
  36. PROCHLORPERAZINE EDISYLATE [Concomitant]
  37. VISTARIL [Concomitant]
  38. ACCUPRIL [Concomitant]
  39. HYDROCHLOROTHIAZIDE [Concomitant]
  40. CLARITIN [Concomitant]
  41. AMANTADINE HCL [Concomitant]
  42. GLUCAGON, HUMAN RECOMBINANT [Concomitant]
  43. GLUCOSE TABLET [Concomitant]
  44. NOVOLOG [Concomitant]
  45. MAALOX [Concomitant]
  46. ACCOLATE [Concomitant]
  47. FOLIC ACID [Concomitant]
  48. THIAMINE HCL [Concomitant]
  49. DESLORATADINE [Concomitant]
  50. CEPACOL [Concomitant]
  51. LORTAB [Concomitant]

REACTIONS (3)
  - DIABETES MELLITUS INADEQUATE CONTROL [None]
  - DIABETIC NEUROPATHY [None]
  - TYPE 2 DIABETES MELLITUS [None]
